FAERS Safety Report 5750385-9 (Version None)
Quarter: 2008Q2

REPORT INFORMATION
  Report Type: 
  Country: None (occurrence: None)
  Receive Date: 20080523
  Receipt Date: 20080523
  Transmission Date: 20081010
  Serious: Yes (Other)
  Sender: FDA-Public Use
  Company Number: None

PATIENT
  Age: 54 Year
  Sex: Female
  Weight: 95.2554 kg

DRUGS (4)
  1. LOVENOX [Suspect]
     Indication: DEEP VEIN THROMBOSIS
     Dosage: 100MG BID SQ
     Route: 058
     Dates: start: 20071128, end: 20071202
  2. LOVENOX [Suspect]
     Indication: PULMONARY EMBOLISM
     Dosage: 100MG BID SQ
     Route: 058
     Dates: start: 20071128, end: 20071202
  3. LOVENOX [Suspect]
     Indication: DEEP VEIN THROMBOSIS
     Dosage: 100MG BID SQ
     Route: 058
     Dates: start: 20071221, end: 20071229
  4. LOVENOX [Suspect]
     Indication: PULMONARY EMBOLISM
     Dosage: 100MG BID SQ
     Route: 058
     Dates: start: 20071221, end: 20071229

REACTIONS (13)
  - CHILLS [None]
  - DEEP VEIN THROMBOSIS [None]
  - DISEASE RECURRENCE [None]
  - INJECTION SITE PAIN [None]
  - INTERNATIONAL NORMALISED RATIO DECREASED [None]
  - MALAISE [None]
  - MYALGIA [None]
  - PRESYNCOPE [None]
  - PULMONARY EMBOLISM [None]
  - PYREXIA [None]
  - TACHYCARDIA [None]
  - TACHYPNOEA [None]
  - THERAPEUTIC PRODUCT CONTAMINATION [None]
